FAERS Safety Report 7960050-5 (Version None)
Quarter: 2011Q4

REPORT INFORMATION
  Report Type: 
  Country: None (occurrence: None)
  Receive Date: 20111206
  Receipt Date: 20111125
  Transmission Date: 20120403
  Serious: Yes (Hospitalization)
  Sender: FDA-Public Use
  Company Number: PHHY2010FR47059

PATIENT
  Sex: Female

DRUGS (7)
  1. IMATINIB MESYLATE [Suspect]
     Indication: CHRONIC MYELOID LEUKAEMIA
     Dosage: 350 MG, DAILY
     Route: 048
     Dates: start: 20050831
  2. AMLODIPINE BESYLATE [Concomitant]
     Dosage: 5 MG, UNK
  3. ZOLPIDEM [Concomitant]
     Dosage: 10 MG, DAILY
  4. SYMBICORT [Concomitant]
     Dosage: 10 MG, DAILY
  5. PANTOPRAZOLE [Concomitant]
     Dosage: 20 MG, DAILY
  6. TRANSIPEG [Concomitant]
     Dosage: MACROGOL 3350
  7. PRIMALAN [Concomitant]
     Dosage: 5 MG, DAILY

REACTIONS (3)
  - DEHYDRATION [None]
  - HYPONATRAEMIA [None]
  - BRONCHITIS [None]
